FAERS Safety Report 21445774 (Version 2)
Quarter: 2022Q4

REPORT INFORMATION
  Report Type: Spontaneous
  Country: US (occurrence: US)
  Receive Date: 20221012
  Receipt Date: 20221031
  Transmission Date: 20230113
  Serious: Yes (Other)
  Sender: FDA-Public Use
  Company Number: US-BAYER-2022A138043

PATIENT
  Age: 15 Year
  Sex: Male

DRUGS (1)
  1. ASPIRIN [Suspect]
     Active Substance: ASPIRIN

REACTIONS (6)
  - Toxicity to various agents [None]
  - Intentional overdose [None]
  - Tinnitus [None]
  - Tachycardia [None]
  - Hyperhidrosis [None]
  - Vomiting [None]
